FAERS Safety Report 7148702-0 (Version None)
Quarter: 2010Q4

REPORT INFORMATION
  Report Type: 
  Country: None (occurrence: None)
  Receive Date: 20101209
  Receipt Date: 20100309
  Transmission Date: 20110411
  Serious: Yes (Other)
  Sender: FDA-Public Use
  Company Number: DE-SOLVAY-00210007245

PATIENT
  Sex: Female

DRUGS (3)
  1. QUILONUM RETARD [Concomitant]
     Indication: DEPRESSION
     Dosage: DAILY DOSE:  UNKNOWN
     Route: 065
  2. AURORIX [Concomitant]
     Indication: DEPRESSION
     Dosage: DAILY DOSE:  UNKNOWN
     Route: 065
  3. UTROGESTAN [Suspect]
     Indication: MENORRHAGIA
     Dosage: DAILY DOSE: 2 DOSAGE FORM
     Route: 048

REACTIONS (10)
  - DECREASED APPETITE [None]
  - DIZZINESS [None]
  - DRUG INTOLERANCE [None]
  - DYSGEUSIA [None]
  - DYSPHAGIA [None]
  - HYPERSENSITIVITY [None]
  - SALIVARY HYPERSECRETION [None]
  - SUFFOCATION FEELING [None]
  - SWOLLEN TONGUE [None]
  - TREMOR [None]
